FAERS Safety Report 5157971-8 (Version None)
Quarter: 2006Q4

REPORT INFORMATION
  Report Type: 
  Country: None (occurrence: None)
  Receive Date: 20061127
  Receipt Date: 20061121
  Transmission Date: 20070319
  Serious: Yes (Other)
  Sender: FDA-Public Use
  Company Number: TR-ROXANE LABORATORIES, INC-2006-BP-13608RO

PATIENT
  Age: 27 Year
  Sex: Female

DRUGS (2)
  1. NAPROXEN [Suspect]
     Indication: MYALGIA
     Dosage: 1100 MG/DAY
  2. MEDICINALPRODUCT NOT SPECIFIED BY SENDER [Concomitant]

REACTIONS (2)
  - CAESAREAN SECTION [None]
  - OLIGOHYDRAMNIOS [None]
